FAERS Safety Report 11849188 (Version 1)
Quarter: 2015Q4

REPORT INFORMATION
  Report Type: Spontaneous
  Country: EG (occurrence: None)
  Receive Date: 20151217
  Receipt Date: 20151217
  Transmission Date: 20160305
  Serious: Yes (Other)
  Sender: FDA-Public Use
  Company Number: None

PATIENT
  Age: 43 Year
  Sex: Male
  Weight: 100 kg

DRUGS (1)
  1. OTRIVIN [Suspect]
     Active Substance: XYLOMETAZOLINE
     Dosage: DROPS
     Route: 045
     Dates: start: 20151206, end: 20151216

REACTIONS (3)
  - Eye pain [None]
  - Eye swelling [None]
  - Headache [None]

NARRATIVE: CASE EVENT DATE: 20151208
